FAERS Safety Report 18443925 (Version 1)
Quarter: 2020Q4

REPORT INFORMATION
  Report Type: Report from Study
  Country: US (occurrence: US)
  Receive Date: 20201030
  Receipt Date: 20201030
  Transmission Date: 20210114
  Serious: No
  Sender: FDA-Public Use
  Company Number: NVSC2020US287484

PATIENT
  Sex: Female

DRUGS (2)
  1. ENTRESTO [Suspect]
     Active Substance: SACUBITRIL\VALSARTAN
     Indication: PRODUCT USED FOR UNKNOWN INDICATION
     Dosage: UNK UNK, UNKNOWN (24/26 MG)
     Route: 048
     Dates: start: 2020
  2. ENTRESTO [Suspect]
     Active Substance: SACUBITRIL\VALSARTAN
     Dosage: UNK UNK, UNKNOWN (49/51 MG)
     Route: 048
     Dates: start: 2020

REACTIONS (6)
  - Muscle spasms [Unknown]
  - Cough [Unknown]
  - Hypoaesthesia [Unknown]
  - Confusional state [Unknown]
  - Peripheral swelling [Unknown]
  - Amnesia [Unknown]
